FAERS Safety Report 26056422 (Version 3)
Quarter: 2025Q4

REPORT INFORMATION
  Report Type: Other
  Country: EU (occurrence: EU)
  Receive Date: 20251118
  Receipt Date: 20251205
  Transmission Date: 20260118
  Serious: Yes (Other)
  Sender: Atnahs Healthcare
  Company Number: None

PATIENT

DRUGS (14)
  1. DIAZEPAM [Suspect]
     Active Substance: DIAZEPAM
     Indication: Restlessness
     Dosage: 5MG PER DOSE AS NEEDED
     Route: 048
     Dates: start: 20250610
  2. AMISULPRIDE [Suspect]
     Active Substance: AMISULPRIDE
     Indication: Product used for unknown indication
     Dosage: 1.5 DOSAGE FORM DAILY (1.5-0-0 FIRST ADMINISTRATION PLANNED FOR 31.10.2025)
     Route: 048
     Dates: start: 20251031
  3. BIPERIDEN [Suspect]
     Active Substance: BIPERIDEN
     Indication: Product used for unknown indication
     Dosage: 1 DOSAGE FORM DAILY (1-0-0 FIRST ADMINISTRATION PLANNED FOR JUNE 24, 2025)
     Route: 048
     Dates: start: 20250624
  4. CLOZAPINE [Suspect]
     Active Substance: CLOZAPINE
     Indication: Product used for unknown indication
     Dosage: 2 DOSAGE FORM DAILY (2 TABLETS IN THE EVENING. FIRST ADMINISTRATION PLANNED FOR OCTOBER 13, 2025.)
     Route: 048
     Dates: start: 20251013
  5. CLOZAPINE [Suspect]
     Active Substance: CLOZAPINE
     Dosage: 175 MG
     Route: 048
  6. LACTULOSE [Suspect]
     Active Substance: LACTULOSE
     Indication: Constipation
     Dosage: 10 ML DAILY/10 ML PER DOSE
     Route: 048
     Dates: start: 20250923
  7. LACTULOSE [Suspect]
     Active Substance: LACTULOSE
     Dosage: 10 ML 8 HRS (FIRST ADMINISTRATION PLANNED FOR 28.10.2025 10-10-10ML)
     Route: 048
     Dates: start: 20251028
  8. POLYETHYLENE GLYCOLS [Suspect]
     Active Substance: POLYETHYLENE GLYCOLS
     Indication: Product used for unknown indication
     Dosage: 1 DOSAGE FORM DAILY (ONE SACHET EACH MORNING, NOON, AND EVENING. FIRST ADMINISTRATION PLANNED FOR SE
     Route: 048
     Dates: start: 20250922
  9. SERTRALINE HYDROCHLORIDE [Suspect]
     Active Substance: SERTRALINE HYDROCHLORIDE
     Indication: Product used for unknown indication
     Dosage: 1 DOSAGE FORM DAILY (ONE TABLET IN THE MORNING. FIRST ADMINISTRATION PLANNED FOR SEPTEMBER 25, 2025.
     Route: 048
     Dates: start: 20250925
  10. BIPERIDEN HYDROCHLORIDE [Suspect]
     Active Substance: BIPERIDEN HYDROCHLORIDE
     Indication: Extrapyramidal disorder
     Dosage: 1 DOSAGE FORM AS NECESSARY (1 PIECE PER INTAKE IF NEEDED)
     Route: 048
     Dates: start: 20250625
  11. HALOPERIDOL [Suspect]
     Active Substance: HALOPERIDOL
     Indication: Restlessness
     Dosage: 5MG IF NECESSARY
     Route: 048
     Dates: start: 20250609
  12. IBUPROFEN [Suspect]
     Active Substance: IBUPROFEN
     Indication: Pain
     Dosage: 1 DOSAGE FORM IF NECESSARY
     Route: 048
     Dates: start: 20250804
  13. LORAZEPAM [Suspect]
     Active Substance: LORAZEPAM
     Indication: Restlessness
     Dosage: 1 DOSAGE FORM IF NECESSARY (1 PIECE PER INTAKE IF NEEDED)
     Route: 048
     Dates: start: 20250816
  14. PROMETHAZINE [Suspect]
     Active Substance: PROMETHAZINE HYDROCHLORIDE
     Indication: Product used for unknown indication
     Dosage: 1 DOSAGE FORM AS NECESSARY (1 PIECE PER DOSE IF NEEDED)
     Route: 048
     Dates: start: 20250608

REACTIONS (42)
  - Seizure [Unknown]
  - Exophthalmos [Unknown]
  - Syncope [Unknown]
  - Angina pectoris [Unknown]
  - Circulatory collapse [Unknown]
  - Loss of consciousness [Unknown]
  - Epilepsy [Unknown]
  - Fear of death [Unknown]
  - Foaming at mouth [Unknown]
  - Tremor [Unknown]
  - Human bite [Unknown]
  - Amnesia [Unknown]
  - Head discomfort [Unknown]
  - Screaming [Unknown]
  - Speech disorder [Unknown]
  - Confusional state [Unknown]
  - Anxiety [Unknown]
  - Headache [Unknown]
  - Dizziness [Unknown]
  - Nausea [Unknown]
  - Constipation [Unknown]
  - Abdominal discomfort [Unknown]
  - Pelvic pain [Unknown]
  - Pyrexia [Unknown]
  - Weight increased [Unknown]
  - Alopecia [Unknown]
  - Menstruation delayed [Unknown]
  - Uterine pain [Unknown]
  - Contraindicated product administered [Unknown]
  - Circumstance or information capable of leading to medication error [Unknown]
  - Labelled drug-drug interaction issue [Unknown]
  - Muscle twitching [Unknown]
  - Tremor [Unknown]
  - Motor dysfunction [Unknown]
  - Dysphemia [Unknown]
  - Memory impairment [Unknown]
  - Posture abnormal [Unknown]
  - Stress [Unknown]
  - Amenorrhoea [Unknown]
  - Tongue biting [Unknown]
  - Hyperacusis [Unknown]
  - Abdominal pain [Unknown]

NARRATIVE: CASE EVENT DATE: 20250101
